FAERS Safety Report 25964070 (Version 1)
Quarter: 2025Q4

REPORT INFORMATION
  Report Type: Spontaneous
  Country: US (occurrence: None)
  Receive Date: 20251026
  Receipt Date: 20251026
  Transmission Date: 20260118
  Serious: Yes (Hospitalization)
  Sender: FDA-CTU
  Company Number: None

PATIENT
  Sex: Female

DRUGS (2)
  1. IBRANCE [Suspect]
     Active Substance: PALBOCICLIB
     Indication: Malignant nervous system neoplasm
     Dosage: OTHER FREQUENCY : 1 TIME A DAY ON DAYS 1 TO 21 OF A 28 DAY CYCLE?
     Route: 048
  2. IBRANCE [Suspect]
     Active Substance: PALBOCICLIB
     Indication: Breast cancer female

REACTIONS (3)
  - Vertigo [None]
  - Immune system disorder [None]
  - Therapy change [None]
